FAERS Safety Report 10128402 (Version 1)
Quarter: 2014Q2

REPORT INFORMATION
  Report Type: Spontaneous
  Country: GB (occurrence: GB)
  Receive Date: 20140428
  Receipt Date: 20140428
  Transmission Date: 20141212
  Serious: Yes (Disabling, Congenital Anomaly, Other)
  Sender: FDA-Public Use
  Company Number: GB-DRREDDYS-GER/UKI/14/0039906

PATIENT
  Age: 2 Year
  Sex: Female
  Weight: 12.6 kg

DRUGS (1)
  1. FLUOXETINE [Suspect]
     Indication: PRODUCT USED FOR UNKNOWN INDICATION
     Route: 064
     Dates: end: 201101

REACTIONS (8)
  - Low birth weight baby [Unknown]
  - Dysmorphism [Not Recovered/Not Resolved]
  - Head deformity [Not Recovered/Not Resolved]
  - Limb malformation [Not Recovered/Not Resolved]
  - Neck deformity [Not Recovered/Not Resolved]
  - Autism [Unknown]
  - Learning disability [Unknown]
  - Foetal exposure during pregnancy [Unknown]
